FAERS Safety Report 7361033-9 (Version None)
Quarter: 2011Q1

REPORT INFORMATION
  Report Type: 
  Country: None (occurrence: None)
  Receive Date: 20110318
  Receipt Date: 20110316
  Transmission Date: 20110831
  Serious: Yes (Hospitalization)
  Sender: FDA-Public Use
  Company Number: FR-ROCHE-762312

PATIENT
  Sex: Female
  Weight: 52 kg

DRUGS (11)
  1. SIMVASTATIN [Concomitant]
     Dosage: DRUG SIMVASTATINE 20, FREQUENCY:DAILY, START DATE:LONG TIME
     Route: 048
  2. LEVOTHYROX [Concomitant]
     Indication: HYPERTHYROIDISM
     Dosage: DOSE:1 AND 1/2 DOSE FORM, FREQUENCY:DAILY, DRUG LEVOTHYROX 50
     Route: 048
  3. ARAVA [Concomitant]
     Indication: RHEUMATOID ARTHRITIS
     Dosage: DRUG: ARAVA 20, START DATE:LONG TIME
     Route: 048
  4. ROACTEMRA [Suspect]
     Indication: RHEUMATOID ARTHRITIS
     Route: 042
     Dates: end: 20110221
  5. CORTANCYL [Concomitant]
     Indication: RHEUMATOID ARTHRITIS
     Dosage: DRUG CORTANCYL 5, FREQUENCY:DAILY, START DATE LONG TIME
     Route: 048
  6. STAGID [Concomitant]
     Dosage: DRUG:STAGID 700
  7. ACETAMINOPHEN [Concomitant]
     Dosage: DRUG:DOLIPRANE 500, FREQUENCY:DAILY
  8. PLAVIX [Concomitant]
     Dosage: DRUG:PLAVIX 75
  9. BISOPROLOL [Concomitant]
     Indication: HYPERTENSION
     Dosage: DOSE:1/2-0-1/2, FREQUENCY:DAILY, START DATE LONG TIME
     Route: 048
  10. NEXIUM [Concomitant]
     Dosage: DRUG REPORTED AS INEXIUM 20, FREQUENCY:DAILY
  11. IDEOS [Concomitant]

REACTIONS (3)
  - MALAISE [None]
  - TREMOR [None]
  - ALTERED STATE OF CONSCIOUSNESS [None]
